FAERS Safety Report 14610556 (Version 6)
Quarter: 2024Q4

REPORT INFORMATION
  Report Type: Spontaneous
  Country: FI (occurrence: FI)
  Receive Date: 20180307
  Receipt Date: 20241231
  Transmission Date: 20250115
  Serious: Yes (Hospitalization, Other)
  Sender: MYLAN
  Company Number: FI-MYLANLABS-2018M1010077

PATIENT
  Age: 37 Year
  Sex: Male
  Weight: 131.5 kg

DRUGS (16)
  1. CLOZAPINE [Suspect]
     Active Substance: CLOZAPINE
     Indication: Schizophrenia
     Dosage: 12.5 MG, QD
     Route: 065
     Dates: start: 20180105, end: 20180105
  2. CLOZAPINE [Suspect]
     Active Substance: CLOZAPINE
     Dosage: 25 MG, QD
     Route: 065
     Dates: start: 20180106, end: 20180107
  3. CLOZAPINE [Suspect]
     Active Substance: CLOZAPINE
     Dosage: 50 MG, QD
     Route: 065
     Dates: start: 20180108, end: 20180109
  4. CLOZAPINE [Suspect]
     Active Substance: CLOZAPINE
     Dosage: 75 MG, QD
     Route: 065
     Dates: start: 20180110, end: 20180111
  5. CLOZAPINE [Suspect]
     Active Substance: CLOZAPINE
     Dosage: 100 MG, QD
     Route: 065
     Dates: start: 20180112, end: 20180113
  6. CLOZAPINE [Suspect]
     Active Substance: CLOZAPINE
     Dosage: 125 MG, QD
     Route: 065
     Dates: start: 20180114, end: 20180115
  7. CLOZAPINE [Suspect]
     Active Substance: CLOZAPINE
     Dosage: 150 MG, QD
     Route: 065
     Dates: start: 20180116, end: 20180117
  8. CLOZAPINE [Suspect]
     Active Substance: CLOZAPINE
     Dosage: 175 MG, QD
     Route: 065
     Dates: start: 20180118, end: 20180119
  9. CLOZAPINE [Suspect]
     Active Substance: CLOZAPINE
     Dosage: 200 MG, QD
     Route: 065
     Dates: start: 20180120, end: 20180121
  10. CLOZAPINE [Suspect]
     Active Substance: CLOZAPINE
     Dosage: 250 MG, QD
     Route: 065
     Dates: start: 20180124, end: 20180125
  11. CLOZAPINE [Suspect]
     Active Substance: CLOZAPINE
     Dosage: 50 MG, QD
     Route: 065
     Dates: start: 20180126, end: 20180202
  12. CLOZAPINE [Suspect]
     Active Substance: CLOZAPINE
     Dosage: 75 MG, QD
     Route: 065
     Dates: start: 20180203, end: 20180204
  13. PALIPERIDONE [Concomitant]
     Active Substance: PALIPERIDONE
     Indication: Schizophrenia
     Dosage: 150 MILLIGRAM
     Route: 065
  14. LORAZEPAM [Concomitant]
     Active Substance: LORAZEPAM
     Indication: Product used for unknown indication
     Dosage: 6 MILLIGRAM
     Route: 065
  15. ZUCLOPENTHIXOL [Concomitant]
     Active Substance: ZUCLOPENTHIXOL
     Indication: Schizophrenia
     Dosage: 60 MILLIGRAM, PRN
     Route: 065
  16. ACETAMINOPHEN [Concomitant]
     Active Substance: ACETAMINOPHEN
     Indication: Product used for unknown indication
     Dosage: 1 DOSAGE FORM, PRN
     Route: 065

REACTIONS (38)
  - Anal fistula [Unknown]
  - Nausea [Recovered/Resolved]
  - Blood pH increased [Recovered/Resolved]
  - Blood lactic acid increased [Unknown]
  - Blood osmolarity decreased [Unknown]
  - N-terminal prohormone brain natriuretic peptide increased [Not Recovered/Not Resolved]
  - Blood sodium decreased [Not Recovered/Not Resolved]
  - Blood creatinine decreased [Not Recovered/Not Resolved]
  - International normalised ratio increased [Recovering/Resolving]
  - Red blood cell sedimentation rate increased [Unknown]
  - Myelocyte percentage increased [Recovering/Resolving]
  - Blood albumin decreased [Unknown]
  - Blood potassium decreased [Recovered/Resolved]
  - Troponin T increased [Recovered/Resolved]
  - Blood bilirubin decreased [Recovered/Resolved]
  - Red blood cell count increased [Recovered/Resolved]
  - Nasopharyngitis [Recovered/Resolved]
  - Pyrexia [Recovered/Resolved]
  - Diarrhoea [Recovered/Resolved]
  - Haematocrit increased [Recovered/Resolved]
  - Vomiting [Recovered/Resolved]
  - Gastroenteritis [Unknown]
  - Eosinophilia [Recovered/Resolved]
  - C-reactive protein increased [Not Recovered/Not Resolved]
  - Colitis [Unknown]
  - Mental disorder [Unknown]
  - Gamma-glutamyltransferase increased [Recovered/Resolved]
  - White blood cell count increased [Not Recovered/Not Resolved]
  - Blood calcium decreased [Recovered/Resolved]
  - Lymphocyte count increased [Recovered/Resolved]
  - Lymphocyte percentage decreased [Recovered/Resolved]
  - Neutrophil count increased [Not Recovered/Not Resolved]
  - Metamyelocyte percentage increased [Not Recovered/Not Resolved]
  - Monocyte count increased [Recovered/Resolved]
  - Basophil count increased [Recovered/Resolved]
  - PO2 decreased [Not Recovered/Not Resolved]
  - Haemoglobin increased [Recovered/Resolved]
  - Blood alkaline phosphatase increased [Recovering/Resolving]

NARRATIVE: CASE EVENT DATE: 20180101
